FAERS Safety Report 18622077 (Version 1)
Quarter: 2020Q4

REPORT INFORMATION
  Report Type: Spontaneous
  Country: TW (occurrence: TW)
  Receive Date: 20201216
  Receipt Date: 20201216
  Transmission Date: 20210114
  Serious: Yes (Hospitalization, Other)
  Sender: FDA-Public Use
  Company Number: TW-MACLEODS PHARMACEUTICALS US LTD-MAC2020029426

PATIENT

DRUGS (1)
  1. SILDENAFIL 100 MG TABLET [Suspect]
     Active Substance: SILDENAFIL
     Indication: PRODUCT USED FOR UNKNOWN INDICATION
     Dosage: 20 DOSAGE FORM, SINGLE
     Route: 065

REACTIONS (12)
  - Tremor [Recovered/Resolved]
  - Asthenia [Unknown]
  - Headache [Recovered/Resolved]
  - Toxicity to various agents [Recovered/Resolved]
  - Leukocytosis [Recovered/Resolved]
  - Electrocardiogram ST-T change [Recovered/Resolved]
  - Suicide attempt [Unknown]
  - Intentional overdose [Unknown]
  - Tachycardia [Recovered/Resolved]
  - Flushing [Recovered/Resolved]
  - Abdominal distension [Recovered/Resolved]
  - Dizziness [Recovered/Resolved]
